FAERS Safety Report 12530400 (Version 1)
Quarter: 2016Q3

REPORT INFORMATION
  Report Type: Spontaneous
  Country: US (occurrence: None)
  Receive Date: 20160705
  Receipt Date: 20160705
  Transmission Date: 20161109
  Serious: Yes (Disabling)
  Sender: FDA-Public Use
  Company Number: None

PATIENT
  Age: 50 Year
  Sex: Female
  Weight: 90.72 kg

DRUGS (9)
  1. MULTIVITAMIN [Concomitant]
     Active Substance: VITAMINS
  2. VITAMIN B12 [Concomitant]
     Active Substance: CYANOCOBALAMIN
  3. CIPROFLOXACIN 500 MG TAB, 500 MG [Suspect]
     Active Substance: CIPROFLOXACIN
     Indication: DIVERTICULITIS
     Route: 048
     Dates: start: 20160623, end: 20160627
  4. ALEVE [Concomitant]
     Active Substance: NAPROXEN SODIUM
  5. IRON SUPPLEMENT [Concomitant]
     Active Substance: IRON
  6. FISH OIL [Concomitant]
     Active Substance: FISH OIL
  7. MAGNESIUM [Concomitant]
     Active Substance: MAGNESIUM
  8. COMPLEX LIQUIDS [Concomitant]
  9. VITAMIN D [Concomitant]
     Active Substance: CHOLECALCIFEROL

REACTIONS (6)
  - Impaired driving ability [None]
  - Tendonitis [None]
  - Pain [None]
  - Bursitis [None]
  - Gait disturbance [None]
  - Joint lock [None]

NARRATIVE: CASE EVENT DATE: 20160623
